FAERS Safety Report 10227432 (Version 2)
Quarter: 2014Q2

REPORT INFORMATION
  Report Type: Spontaneous
  Country: US (occurrence: US)
  Receive Date: 20140610
  Receipt Date: 20140619
  Transmission Date: 20141212
  Serious: No
  Sender: FDA-Public Use
  Company Number: US-SUN PHARMACEUTICAL INDUSTRIES LTD-2014SUN01235

PATIENT
  Sex: 0

DRUGS (2)
  1. MIDRIN CAPSULES [Suspect]
     Indication: MIGRAINE
     Dosage: TOOK 2 MIDRIN
     Route: 065
     Dates: start: 200008
  2. MIDRIN CAPSULES [Suspect]
     Dosage: 2 DF, UNK
     Route: 065
     Dates: start: 200008

REACTIONS (1)
  - Drug ineffective [Unknown]
